FAERS Safety Report 9026572 (Version 1)
Quarter: 2013Q1

REPORT INFORMATION
  Report Type: Spontaneous
  Country: FR (occurrence: None)
  Receive Date: 20130109
  Receipt Date: 20130109
  Transmission Date: 20140127
  Serious: Yes (Hospitalization)
  Sender: FDA-Public Use
  Company Number: DSM-2012-01407

PATIENT
  Age: 86 Year
  Sex: Male

DRUGS (2)
  1. OLMETEC (OLMESARTAN MEDOXOMIL) (20 MILLIGRAM, TABLET) (OLMESARTAN MEDOXOMIL) [Suspect]
     Indication: HYPERTENSION
     Route: 048
     Dates: end: 20120921
  2. PARIET (RABEPRAZOLE SODIUM) [Concomitant]

REACTIONS (4)
  - Hyponatraemia [None]
  - Confusional state [None]
  - Amnesia [None]
  - Cerebral atrophy [None]
